FAERS Safety Report 20684776 (Version 2)
Quarter: 2022Q3

REPORT INFORMATION
  Report Type: Spontaneous
  Country: PT (occurrence: PT)
  Receive Date: 20220407
  Receipt Date: 20220714
  Transmission Date: 20221027
  Serious: Yes (Other)
  Sender: FDA-Public Use
  Company Number: None

PATIENT
  Sex: Female
  Weight: 96 kg

DRUGS (3)
  1. PYLERA [Suspect]
     Active Substance: BISMUTH SUBCITRATE POTASSIUM\METRONIDAZOLE\TETRACYCLINE HYDROCHLORIDE
     Indication: Helicobacter infection
     Dosage: UNK
     Route: 048
     Dates: start: 20220327, end: 20220328
  2. LEVOTHYROXINE SODIUM [Concomitant]
     Active Substance: LEVOTHYROXINE SODIUM
  3. RIVOTRIL [Concomitant]
     Active Substance: CLONAZEPAM
     Dosage: 0.5 MG

REACTIONS (11)
  - Alopecia areata [Not Recovered/Not Resolved]
  - Alopecia [Recovered/Resolved]
  - Scar [Not Recovered/Not Resolved]
  - Discomfort [Unknown]
  - Emotional disorder [Unknown]
  - Stress [Unknown]
  - Feeling of despair [Unknown]
  - Nervousness [Unknown]
  - Pruritus [Recovered/Resolved]
  - Anxiety [Unknown]
  - Depressed mood [Unknown]

NARRATIVE: CASE EVENT DATE: 20220101
